FAERS Safety Report 8814615 (Version 1)
Quarter: 2012Q4

REPORT INFORMATION
  Report Type: 
  Country: US (occurrence: US)
  Receive Date: 20120928
  Receipt Date: 20120928
  Transmission Date: 20130627
  Serious: Yes (Other)
  Sender: FDA-Public Use
  Company Number: US-FRI-1000038827

PATIENT
  Age: 27 Year
  Sex: Male

DRUGS (4)
  1. VIIBRYD [Suspect]
     Indication: DEPRESSION
     Dosage: 10 mg
     Dates: start: 201208, end: 2012
  2. VIIBRYD [Suspect]
     Indication: ANXIETY
     Dosage: 20 mg
     Dates: start: 2012, end: 2012
  3. VIIBRYD [Suspect]
     Indication: DEPRESSION
     Dosage: 40 mg
     Dates: start: 2012, end: 2012
  4. VIIBRYD [Suspect]
     Indication: ANXIETY
     Dates: start: 2012, end: 2012

REACTIONS (3)
  - Suicidal ideation [Recovered/Resolved]
  - Anxiety [Recovered/Resolved]
  - Depression [Recovered/Resolved]
